FAERS Safety Report 7272774-6 (Version None)
Quarter: 2011Q1

REPORT INFORMATION
  Report Type: 
  Country: None (occurrence: None)
  Receive Date: 20110203
  Receipt Date: 20110125
  Transmission Date: 20110831
  Serious: Yes (Other)
  Sender: FDA-Public Use
  Company Number: AT-ASTRAZENECA-2011SE05025

PATIENT
  Age: 68 Year
  Sex: Female

DRUGS (16)
  1. SEROQUEL [Suspect]
     Route: 048
     Dates: start: 20100111, end: 20100112
  2. SEROQUEL [Suspect]
     Route: 048
     Dates: start: 20100126, end: 20100131
  3. LYRICA [Suspect]
     Route: 065
     Dates: start: 20100225
  4. SEROQUEL [Suspect]
     Route: 048
     Dates: start: 20100208
  5. LYRICA [Suspect]
     Indication: GENERALISED ANXIETY DISORDER
     Route: 065
     Dates: start: 20100113, end: 20100115
  6. CIPRALEX [Concomitant]
     Route: 065
     Dates: start: 20100107, end: 20100112
  7. TRITTICO [Concomitant]
     Route: 065
     Dates: start: 20100107
  8. CIPRALEX [Concomitant]
     Route: 065
     Dates: start: 20100113, end: 20100208
  9. SEROQUEL [Suspect]
     Route: 048
     Dates: start: 20100201, end: 20100207
  10. LYRICA [Suspect]
     Route: 065
     Dates: start: 20100116, end: 20100118
  11. LYRICA [Suspect]
     Route: 065
     Dates: start: 20100223, end: 20100224
  12. SEROQUEL [Suspect]
     Route: 048
     Dates: start: 20100113, end: 20100125
  13. LYRICA [Suspect]
     Route: 065
     Dates: start: 20100121, end: 20100130
  14. LYRICA [Suspect]
     Route: 065
     Dates: start: 20100119, end: 20100120
  15. LYRICA [Suspect]
     Route: 065
     Dates: start: 20100131, end: 20100222
  16. CIPRALEX [Concomitant]
     Route: 065
     Dates: start: 20100209, end: 20100308

REACTIONS (2)
  - VISUAL IMPAIRMENT [None]
  - DIZZINESS [None]
